FAERS Safety Report 17693688 (Version 1)
Quarter: 2020Q2

REPORT INFORMATION
  Report Type: Spontaneous
  Country: CA (occurrence: CA)
  Receive Date: 20200422
  Receipt Date: 20200422
  Transmission Date: 20200714
  Serious: Yes (Other)
  Sender: FDA-Public Use
  Company Number: CA-PFIZER INC-2020157121

PATIENT
  Age: 56 Year
  Sex: Female

DRUGS (5)
  1. CORTEF [Suspect]
     Active Substance: HYDROCORTISONE
     Dosage: 15 MG, DAILY
  2. CORTEF [Suspect]
     Active Substance: HYDROCORTISONE
     Dosage: 30 MG, DAILY
  3. CORTEF [Suspect]
     Active Substance: HYDROCORTISONE
     Indication: ADRENAL INSUFFICIENCY
     Dosage: 40 MG, DAILY
  4. CORTEF [Suspect]
     Active Substance: HYDROCORTISONE
     Dosage: 25 MG, DAILY
  5. CORTEF [Suspect]
     Active Substance: HYDROCORTISONE
     Dosage: 25 MG, DAILY

REACTIONS (6)
  - Stress [Unknown]
  - Malaise [Unknown]
  - Drug dependence [Unknown]
  - Tooth infection [Unknown]
  - Gait disturbance [Unknown]
  - Tremor [Unknown]
